FAERS Safety Report 6330143-7 (Version None)
Quarter: 2009Q3

REPORT INFORMATION
  Report Type: 
  Country: None (occurrence: None)
  Receive Date: 20090827
  Receipt Date: 20090817
  Transmission Date: 20100115
  Serious: Yes (Hospitalization)
  Sender: FDA-Public Use
  Company Number: US-BIOGENIDEC-2009BI025789

PATIENT
  Age: 50 Year
  Sex: Female
  Weight: 58 kg

DRUGS (5)
  1. AVONEX [Suspect]
     Indication: MULTIPLE SCLEROSIS
     Route: 030
     Dates: start: 20010101, end: 20030101
  2. AVONEX [Suspect]
     Route: 030
     Dates: start: 20030101, end: 20090401
  3. AVONEX [Suspect]
     Route: 030
     Dates: start: 20090501
  4. VALIUM [Concomitant]
     Indication: MUSCLE SPASTICITY
     Route: 048
  5. BACLOFEN [Concomitant]
     Indication: MUSCLE SPASTICITY
     Route: 048

REACTIONS (16)
  - BALANCE DISORDER [None]
  - COGNITIVE DISORDER [None]
  - COLITIS [None]
  - CONCUSSION [None]
  - ENTEROCOLITIS INFECTIOUS [None]
  - FALL [None]
  - HEAD INJURY [None]
  - HYPOAESTHESIA [None]
  - INTERVERTEBRAL DISC DISORDER [None]
  - INTERVERTEBRAL DISC PROTRUSION [None]
  - MULTIPLE SCLEROSIS RELAPSE [None]
  - OPEN WOUND [None]
  - PERONEAL NERVE PALSY [None]
  - POST PROCEDURAL HYPOTHYROIDISM [None]
  - POST-TRAUMATIC HEADACHE [None]
  - THYROID CANCER [None]
